FAERS Safety Report 6430917-8 (Version None)
Quarter: 2009Q4

REPORT INFORMATION
  Report Type: 
  Country: None (occurrence: None)
  Receive Date: 20091106
  Receipt Date: 20091102
  Transmission Date: 20100525
  Serious: Yes (Life-Threatening, Hospitalization)
  Sender: FDA-Public Use
  Company Number: DK-ASTRAZENECA-2009SE15078

PATIENT
  Sex: Male

DRUGS (15)
  1. MERONEM [Suspect]
     Indication: KLEBSIELLA INFECTION
     Route: 042
     Dates: start: 20090625, end: 20090725
  2. MERONEM [Suspect]
     Route: 042
     Dates: start: 20090730, end: 20090807
  3. MERONEM [Suspect]
     Route: 042
     Dates: start: 20090813, end: 20090829
  4. NEXIUM [Concomitant]
     Route: 048
  5. INVANZ [Concomitant]
     Route: 042
     Dates: start: 20090904, end: 20090907
  6. MEDILAX [Concomitant]
     Dosage: 667 MG/ML
     Route: 048
  7. MYCOSTATIN [Concomitant]
     Dosage: 100000 INTERNATIONAL UNITS/ML
     Route: 048
  8. PHOS-EX [Concomitant]
     Route: 048
  9. ENOXAPARIN SODIUM [Concomitant]
     Dosage: 100 MG/ML
     Route: 058
  10. HJERDYL [Concomitant]
     Route: 048
  11. SIMVASTATIN [Concomitant]
  12. NEUPOGEN [Concomitant]
     Dosage: 0.3 MG/ML
     Route: 042
  13. TRIMONIL RETARD [Concomitant]
     Route: 048
  14. CIPRALEX [Concomitant]
     Route: 048
  15. FURIX [Concomitant]

REACTIONS (1)
  - AGRANULOCYTOSIS [None]
